FAERS Safety Report 8338974-9 (Version None)
Quarter: 2012Q2

REPORT INFORMATION
  Report Type: 
  Country: None (occurrence: None)
  Receive Date: 20120507
  Receipt Date: 20120430
  Transmission Date: 20120825
  Serious: No
  Sender: FDA-Public Use
  Company Number: US-BAYER-2012-043248

PATIENT
  Age: 61 Year
  Sex: Male

DRUGS (2)
  1. MAGNEVIST [Suspect]
     Indication: NUCLEAR MAGNETIC RESONANCE IMAGING
     Dosage: 20 ML (TOTAL DOSAGE USED 35ML ), ONCE
     Route: 042
     Dates: start: 20120430, end: 20120430
  2. MAGNEVIST [Suspect]
     Dosage: 15 ML (TOTAL DOSAGE USED 35ML ), ONCE
     Dates: start: 20120430, end: 20120430

REACTIONS (1)
  - VOMITING [None]
